FAERS Safety Report 9207106 (Version 1)
Quarter: 2013Q1

REPORT INFORMATION
  Report Type: Spontaneous
  Country: US (occurrence: None)
  Receive Date: 20120731
  Receipt Date: 20120731
  Transmission Date: 20140127
  Serious: No
  Sender: FDA-Public Use
  Company Number: 2012MZ000297

PATIENT
  Age: 71 Year
  Sex: Female
  Weight: 79.38 kg

DRUGS (1)
  1. XEOMIN [Suspect]
     Indication: TORTICOLLIS
     Dates: start: 20120404, end: 20120404

REACTIONS (2)
  - Sensation of foreign body [None]
  - Dysphonia [None]
